FAERS Safety Report 5555321-6 (Version None)
Quarter: 2007Q4

REPORT INFORMATION
  Report Type: 
  Country: None (occurrence: None)
  Receive Date: 20071130
  Receipt Date: 20070706
  Transmission Date: 20080405
  Serious: No
  Sender: FDA-Public Use
  Company Number: US200704006285

PATIENT
  Age: 67 Year
  Sex: Female

DRUGS (4)
  1. BYETTA [Suspect]
     Indication: TYPE 2 DIABETES MELLITUS
     Dosage: 5 UG, 2/D, SUBCUTANEOUS
     Route: 058
     Dates: start: 20070419
  2. EXENATIDE 5MCG PEN, DISPOSABLE DEVICE (EXENATIDE PEN (5MCG)) PEN,DISPO [Concomitant]
  3. GLUCOPHAGE [Concomitant]
  4. ACETAMINOPHEN [Concomitant]

REACTIONS (4)
  - BURNING SENSATION [None]
  - DYSARTHRIA [None]
  - FATIGUE [None]
  - FEELING HOT [None]
